FAERS Safety Report 6104888-8 (Version None)
Quarter: 2009Q1

REPORT INFORMATION
  Report Type: 
  Country: None (occurrence: None)
  Receive Date: 20090304
  Receipt Date: 20090304
  Transmission Date: 20090719
  Serious: Yes (Other)
  Sender: FDA-Public Use
  Company Number: None

PATIENT
  Sex: Female

DRUGS (1)
  1. 2% CHLORHEXIDINE CLOTH, SAGE PRODUCTS INC. [Suspect]
     Indication: PREOPERATIVE CARE
     Dosage: SINGLE USE TOPICALLY APPLIED
     Route: 061
     Dates: start: 20090112

REACTIONS (2)
  - ERYTHEMA [None]
  - PRURITUS [None]
